FAERS Safety Report 9557058 (Version 1)
Quarter: 2013Q3

REPORT INFORMATION
  Report Type: Spontaneous
  Country: US (occurrence: None)
  Receive Date: 20130726
  Receipt Date: 20130726
  Transmission Date: 20140515
  Serious: Yes (Hospitalization)
  Sender: FDA-Public Use
  Company Number: UTC-025664

PATIENT
  Age: 65 Year
  Sex: Male
  Weight: 73.63 kg

DRUGS (2)
  1. REMODULIN [Suspect]
     Indication: PULMONARY ARTERIAL HYPERTENSION
     Dosage: 90.72 UG/KG (0.063 UG/KG, 1 IN 1 MIN), INTRAVENOUS DRIP
     Route: 041
     Dates: start: 20120501
  2. TRACLEER (BOSENTAN) (UNKNOWN) [Concomitant]

REACTIONS (1)
  - Device related infection [None]
